FAERS Safety Report 4840414-9 (Version None)
Quarter: 2005Q4

REPORT INFORMATION
  Report Type: 
  Country: None (occurrence: None)
  Receive Date: 20051031
  Receipt Date: 20050912
  Transmission Date: 20060501
  Serious: Yes (Hospitalization)
  Sender: FDA-Public Use
  Company Number: 200516569US

PATIENT
  Age: 56 Year
  Sex: Female
  Weight: 75.7 kg

DRUGS (5)
  1. KETEK [Suspect]
     Indication: SINUSITIS
     Dosage: 800 MG QD PO
     Route: 048
     Dates: start: 20050816, end: 20050801
  2. HYDROCHLOROTHIAZIDE [Concomitant]
  3. VALSARTAN (DIOVAN HCT) [Concomitant]
  4. SYNTHROID [Concomitant]
  5. PRIMIDONE [Concomitant]

REACTIONS (12)
  - ABDOMINAL DISTENSION [None]
  - ABDOMINAL PAIN UPPER [None]
  - ABDOMINAL TENDERNESS [None]
  - CHILLS [None]
  - DECREASED APPETITE [None]
  - ERUCTATION [None]
  - HEPATITIS [None]
  - MALAISE [None]
  - MUSCLE SPASMS [None]
  - NAUSEA [None]
  - PAROSMIA [None]
  - PYREXIA [None]
